FAERS Safety Report 5098898-X (Version None)
Quarter: 2006Q3

REPORT INFORMATION
  Report Type: 
  Country: None (occurrence: None)
  Receive Date: 20060905
  Receipt Date: 20060817
  Transmission Date: 20061208
  Serious: Yes (Hospitalization)
  Sender: FDA-Public Use
  Company Number: 2006001643

PATIENT
  Age: 56 Year
  Sex: Female
  Weight: 82.5547 kg

DRUGS (21)
  1. ERLOTINIB (TABLET) (ERLOTINIB HCL) [Suspect]
     Indication: SQUAMOUS CELL CARCINOMA
     Dosage: 150 MG (QD), ORAL
     Route: 048
     Dates: start: 20060606
  2. ZANTAC [Concomitant]
  3. INDERAL LA [Concomitant]
  4. GLUCOPHAGE [Concomitant]
  5. MIRAPEX [Concomitant]
  6. LOPID [Concomitant]
  7. GLIPIZIDE [Concomitant]
  8. FISH OIL (FISH OIL) [Concomitant]
  9. WELLBUTRIN [Concomitant]
  10. HYDROMORPHONE (HYDROMORPHONE HYDROCHLORIDE) [Concomitant]
  11. NICOTINE [Concomitant]
  12. IBUPROFEN [Concomitant]
  13. MANNITOL [Concomitant]
  14. SODIUM THIOSULFATE (SODIUM THIOSULFATE) [Concomitant]
  15. CELEXA [Concomitant]
  16. CLONAZEPAM [Concomitant]
  17. BACTRIM [Concomitant]
  18. POTASSIUM (POTASSIUM) [Concomitant]
  19. IMODIUM [Concomitant]
  20. LOMOTIL [Concomitant]
  21. CISPLATIN [Concomitant]

REACTIONS (14)
  - ANXIETY [None]
  - DEHYDRATION [None]
  - DIARRHOEA [None]
  - DIZZINESS [None]
  - DYSPHAGIA [None]
  - EPISTAXIS [None]
  - HYPOAESTHESIA [None]
  - HYPOGLYCAEMIA [None]
  - MOUTH HAEMORRHAGE [None]
  - NAUSEA [None]
  - PARAESTHESIA [None]
  - SOMNOLENCE [None]
  - STOMATITIS [None]
  - VOMITING [None]
